FAERS Safety Report 8191121-9 (Version None)
Quarter: 2012Q1

REPORT INFORMATION
  Report Type: 
  Country: None (occurrence: None)
  Receive Date: 20120307
  Receipt Date: 20120213
  Transmission Date: 20120608
  Serious: Yes (Hospitalization)
  Sender: FDA-Public Use
  Company Number: JP-GLAXOSMITHKLINE-B0782234A

PATIENT
  Sex: Female

DRUGS (13)
  1. DIOVAN [Concomitant]
     Indication: HYPERTENSION
     Dosage: 80MG PER DAY
     Route: 048
  2. FUROSEMIDE [Concomitant]
     Indication: CARDIAC FAILURE
     Dosage: 10MG PER DAY
     Route: 065
  3. LANSOPRAZOLE [Concomitant]
     Dosage: 30MG PER DAY
     Route: 048
  4. ALLOPURINOL [Suspect]
     Indication: HYPERURICAEMIA
     Dosage: 100MG PER DAY
     Route: 048
     Dates: start: 20100902, end: 20120213
  5. SERMION [Concomitant]
     Indication: CEREBRAL INFARCTION
     Dosage: 15MG PER DAY
     Route: 048
  6. ALFAROL [Concomitant]
     Route: 048
  7. DEPAS [Concomitant]
     Indication: INSOMNIA
     Dosage: .5MG PER DAY
     Route: 048
  8. BUFFERIN [Concomitant]
     Indication: CEREBRAL INFARCTION
     Route: 048
  9. SELBEX [Concomitant]
     Route: 048
  10. CHINESE MEDICINE [Concomitant]
     Route: 048
  11. NORVASC [Concomitant]
     Indication: HYPERTENSION
     Dosage: 5MG PER DAY
     Route: 048
  12. ZANTAC [Suspect]
     Indication: PRODUCT USED FOR UNKNOWN INDICATION
     Route: 048
  13. FERROUS SULFATE TAB [Concomitant]
     Dosage: 105MG PER DAY
     Route: 048
     Dates: start: 20080327

REACTIONS (5)
  - ANAEMIA [None]
  - ABDOMINAL PAIN UPPER [None]
  - GASTRIC ULCER [None]
  - PYREXIA [None]
  - GASTROINTESTINAL HAEMORRHAGE [None]
